FAERS Safety Report 25884387 (Version 1)
Quarter: 2025Q4

REPORT INFORMATION
  Report Type: Spontaneous
  Country: US (occurrence: US)
  Receive Date: 20251006
  Receipt Date: 20251006
  Transmission Date: 20260117
  Serious: No
  Sender: INCYTE
  Company Number: US-EVENT-004412

PATIENT
  Age: 75 Year

DRUGS (1)
  1. JAKAFI [Suspect]
     Active Substance: RUXOLITINIB
     Indication: Red blood cell count increased
     Dosage: 10 MILLIGRAM, TWICE A DAY ON SOME DAYS AND ONCE A DAY ON OTHER DAYS
     Route: 065

REACTIONS (2)
  - Haemoglobin decreased [Unknown]
  - Off label use [Unknown]
